FAERS Safety Report 17718492 (Version 1)
Quarter: 2020Q2

REPORT INFORMATION
  Report Type: Spontaneous
  Country: HR (occurrence: HR)
  Receive Date: 20200428
  Receipt Date: 20200428
  Transmission Date: 20200714
  Serious: Yes (Other)
  Sender: FDA-Public Use
  Company Number: HR-TEVA-2020-HR-1227061

PATIENT
  Age: 80 Year
  Sex: Female

DRUGS (6)
  1. IRUZID (HYDROCHLOROTHIAZIDE/LISINOPRIL DIHYDRATE) [Suspect]
     Active Substance: HYDROCHLOROTHIAZIDE\LISINOPRIL
     Dosage: 20/25, 1 DOSAGE FORMS , 1 DF=20 MG LISINOPRIL + 25 MG HYDROCHLOROTHIAZIDE
     Route: 048
  2. ATORVOX TABLETE 10 MG [Suspect]
     Active Substance: ATORVASTATIN
     Dosage: 10 MG
     Route: 048
  3. LERKANIDIPIN PHARMAS [Suspect]
     Active Substance: LERCANIDIPINE
     Indication: HYPERTENSION
     Dosage: 10; 1X1, 10 MG
     Route: 048
     Dates: start: 20200404, end: 20200411
  4. TIMALEN [Suspect]
     Active Substance: TIMOLOL MALEATE
     Indication: GLAUCOMA
     Route: 047
  5. TRAVATAN [Suspect]
     Active Substance: TRAVOPROST
     Indication: GLAUCOMA
     Route: 047
  6. VOLTAREN [Suspect]
     Active Substance: DICLOFENAC SODIUM
     Indication: PAIN
     Route: 048
     Dates: start: 202004

REACTIONS (2)
  - Loss of consciousness [Recovered/Resolved]
  - Oedema peripheral [Recovered/Resolved]

NARRATIVE: CASE EVENT DATE: 20200404
